FAERS Safety Report 9072353 (Version 1)
Quarter: 2013Q1

REPORT INFORMATION
  Report Type: Spontaneous
  Country: US (occurrence: US)
  Receive Date: 20130206
  Receipt Date: 20130206
  Transmission Date: 20140127
  Serious: No
  Sender: FDA-Public Use
  Company Number: US-ALLERGAN-1218053US

PATIENT
  Age: 37 Year
  Sex: Female

DRUGS (10)
  1. RESTASIS? [Suspect]
     Indication: DRY EYE
     Dosage: 2 GTT, BID
     Route: 047
     Dates: start: 20121226
  2. REFRESH OPTIVE SENSITIVE [Concomitant]
     Indication: DRY EYE
     Dosage: 2 GTT, BID
     Route: 047
     Dates: start: 201211
  3. PRENATAL                           /00231801/ [Concomitant]
     Indication: SUPPLEMENTATION THERAPY
     Dosage: UNK
     Route: 048
  4. ZOLOFT                             /01011401/ [Concomitant]
     Indication: DEPRESSION
     Dosage: 50 MG, QD
     Dates: start: 201211
  5. WARFARIN [Concomitant]
     Indication: BLOOD PRESSURE
     Dosage: 5 MG, QD
     Route: 048
     Dates: start: 201202
  6. CONCERTA [Concomitant]
     Indication: ATTENTION DEFICIT/HYPERACTIVITY DISORDER
     Dosage: 36 MG, QD
     Route: 048
  7. AMOXICILLIN [Concomitant]
     Indication: ACNE
     Dosage: 500 MG, BID
     Route: 048
     Dates: start: 201211
  8. MICRONOR [Concomitant]
     Indication: ORAL CONTRACEPTION
     Dosage: UNK UNK, QD
     Route: 048
     Dates: start: 201210
  9. ZOCOR [Concomitant]
     Indication: BLOOD CHOLESTEROL INCREASED
     Dosage: 10 MG, QD
     Route: 048
     Dates: start: 201211
  10. KOMBIGLYZE [Concomitant]

REACTIONS (4)
  - Rhinorrhoea [Recovered/Resolved]
  - Nasal dryness [Not Recovered/Not Resolved]
  - Wrong technique in drug usage process [Unknown]
  - Eye discharge [Recovered/Resolved]
